FAERS Safety Report 6888558-4 (Version None)
Quarter: 2010Q3

REPORT INFORMATION
  Report Type: 
  Country: None (occurrence: None)
  Receive Date: 20100730
  Receipt Date: 20100720
  Transmission Date: 20110219
  Serious: Yes (Other)
  Sender: FDA-Public Use
  Company Number: US-ABBOTT-10P-163-0659030-00

PATIENT
  Sex: Female
  Weight: 45.4 kg

DRUGS (4)
  1. HUMIRA [Suspect]
     Indication: RHEUMATOID ARTHRITIS
     Dates: start: 20030101
  2. ACTONEL [Concomitant]
     Indication: OSTEOPOROSIS
  3. ACTONEL [Concomitant]
     Indication: RHEUMATOID ARTHRITIS
  4. VITAMINS [Concomitant]
     Indication: VITAMIN SUPPLEMENTATION

REACTIONS (3)
  - PAIN IN EXTREMITY [None]
  - SKIN CANCER [None]
  - SKIN ULCER [None]
